FAERS Safety Report 12909117 (Version 1)
Quarter: 2016Q4

REPORT INFORMATION
  Report Type: Spontaneous
  Country: US (occurrence: US)
  Receive Date: 20161103
  Receipt Date: 20161103
  Transmission Date: 20170207
  Serious: No
  Sender: FDA-Public Use
  Company Number: US-JAZZ-2016-US-017068

PATIENT
  Sex: Female

DRUGS (14)
  1. XYREM [Suspect]
     Active Substance: SODIUM OXYBATE
     Indication: NARCOLEPSY
     Dosage: 2.25 G, BID
     Route: 048
     Dates: start: 201411, end: 201411
  2. CITALOPRAM [Concomitant]
     Active Substance: CITALOPRAM HYDROBROMIDE
  3. SUMATRIPTAN SUCCINATE. [Concomitant]
     Active Substance: SUMATRIPTAN SUCCINATE
  4. GABAPENTIN. [Concomitant]
     Active Substance: GABAPENTIN
  5. NORTRIPTYLINE HCL [Concomitant]
     Active Substance: NORTRIPTYLINE HYDROCHLORIDE
  6. NUVIGIL [Concomitant]
     Active Substance: ARMODAFINIL
  7. LYRICA [Concomitant]
     Active Substance: PREGABALIN
  8. PROPRANOLOL [Concomitant]
     Active Substance: PROPRANOLOL\PROPRANOLOL HYDROCHLORIDE
  9. MELOXICAM. [Concomitant]
     Active Substance: MELOXICAM
  10. XYREM [Suspect]
     Active Substance: SODIUM OXYBATE
     Dosage: 3.75 G, BID
     Route: 048
     Dates: start: 201412
  11. FLONASE [Concomitant]
     Active Substance: FLUTICASONE PROPIONATE
  12. METHYLPHENIDATE. [Concomitant]
     Active Substance: METHYLPHENIDATE
  13. PRILOSEC [Concomitant]
     Active Substance: OMEPRAZOLE MAGNESIUM
  14. XYREM [Suspect]
     Active Substance: SODIUM OXYBATE
     Dosage: 3 G, BID
     Route: 048
     Dates: start: 201411, end: 201412

REACTIONS (2)
  - Diarrhoea [Unknown]
  - Unevaluable event [Unknown]
